FAERS Safety Report 9033487 (Version 1)
Quarter: 2013Q1

REPORT INFORMATION
  Report Type: Spontaneous
  Country: US (occurrence: US)
  Receive Date: 20130128
  Receipt Date: 20130128
  Transmission Date: 20140127
  Serious: Yes (Hospitalization)
  Sender: FDA-Public Use
  Company Number: US-VERTEX PHARMACEUTICALS INC.-2013-001233

PATIENT
  Age: 59 Year
  Sex: Male
  Weight: 69 kg

DRUGS (24)
  1. INCIVEK [Suspect]
     Indication: HEPATITIS C
     Dosage: 750 MG, TID
     Route: 048
     Dates: start: 20121115
  2. RIBAVIRIN [Suspect]
     Dosage: 1000 MG, UNK
     Route: 048
     Dates: start: 20121115, end: 20121211
  3. RIBAVIRIN [Suspect]
     Dosage: 800 MG, UNK
     Route: 048
     Dates: start: 20121212, end: 20121226
  4. RIBAVIRIN [Suspect]
     Dosage: 600 MG, UNK
     Route: 048
     Dates: start: 20121227
  5. PEGINTERFERON ALFA-2A [Concomitant]
     Indication: THROMBOCYTOPENIA
     Dosage: 180 ?G, QW
     Route: 058
  6. LORATADINE [Concomitant]
  7. PRILOSEC [Concomitant]
  8. TRAMADOL [Concomitant]
  9. ADVAIR [Concomitant]
  10. VENTOLIN [Concomitant]
  11. METOPROLOL [Concomitant]
  12. CHLORTHALIDONE [Concomitant]
  13. POTASSIUM CHLORIDE [Concomitant]
  14. TYLENOL [Concomitant]
  15. PREPARATION H [Concomitant]
  16. ZOFRAN [Concomitant]
  17. ALLOPURINOL [Concomitant]
  18. LOPID [Concomitant]
  19. MORPHINE SULFATE [Concomitant]
  20. BENABAPROL [Concomitant]
  21. NEUPOGEN [Concomitant]
  22. ANUSOL HC [Concomitant]
  23. HYDROCORTISONE [Concomitant]
  24. COMPAZINE [Concomitant]

REACTIONS (1)
  - Anaemia [Not Recovered/Not Resolved]
